FAERS Safety Report 20821705 (Version 2)
Quarter: 2022Q2

REPORT INFORMATION
  Report Type: Other
  Country: US (occurrence: None)
  Receive Date: 20220512
  Receipt Date: 20220601
  Transmission Date: 20220721
  Serious: Yes (Hospitalization)
  Sender: FDA-Public Use
  Company Number: US-ROCHE-3092325

PATIENT
  Sex: Male

DRUGS (1)
  1. GAVRETO [Suspect]
     Active Substance: PRALSETINIB
     Indication: Adenocarcinoma
     Dosage: TAKE 4 CAPSULE(S) ORALLY PER DAY ON AN EMPTY STOMACH, 1 HOUR BEFORE MEALS OR 2 HOURS AFTER MEALS.
     Route: 048
     Dates: start: 20220217

REACTIONS (6)
  - Dyspnoea [Unknown]
  - Pericardial effusion [Unknown]
  - Disease progression [Unknown]
  - Drug ineffective [Unknown]
  - Atelectasis [Unknown]
  - Pneumonia [Unknown]
